FAERS Safety Report 4677828-6 (Version None)
Quarter: 2005Q2

REPORT INFORMATION
  Report Type: 
  Country: None (occurrence: None)
  Receive Date: 20050527
  Receipt Date: 20050520
  Transmission Date: 20051028
  Serious: Yes (Hospitalization)
  Sender: FDA-Public Use
  Company Number: KII-2005-0016722

PATIENT
  Age: 19 Year
  Sex: Female

DRUGS (2)
  1. OXYCODONE HCL [Suspect]
     Dosage: SEE IMAGE
     Route: 048
  2. ASPIRIN [Suspect]

REACTIONS (2)
  - AGGRESSION [None]
  - OVERDOSE [None]
